FAERS Safety Report 6713473-6 (Version None)
Quarter: 2010Q2

REPORT INFORMATION
  Report Type: 
  Country: None (occurrence: None)
  Receive Date: 20100506
  Receipt Date: 20100427
  Transmission Date: 20101027
  Serious: Yes (Other)
  Sender: FDA-Public Use
  Company Number: JP-PFIZER INC-2010055556

PATIENT

DRUGS (4)
  1. SOLANAX [Suspect]
     Dosage: UNK
  2. HALCION [Suspect]
     Dosage: UNK
  3. AMOXAN [Concomitant]
     Dosage: UNK
     Route: 048
  4. DEPAS [Concomitant]
     Dosage: UNK
     Route: 048

REACTIONS (3)
  - DRUG EXPOSURE DURING PREGNANCY [None]
  - NEONATAL RESPIRATORY DEPRESSION [None]
  - SOMNOLENCE NEONATAL [None]
